FAERS Safety Report 5342295-6 (Version None)
Quarter: 2007Q2

REPORT INFORMATION
  Report Type: 
  Country: None (occurrence: None)
  Receive Date: 20070416
  Receipt Date: 20070309
  Transmission Date: 20071010
  Serious: No
  Sender: FDA-Public Use
  Company Number: 2007SP000873

PATIENT
  Age: 44 Year
  Sex: Female
  Weight: 58.9676 kg

DRUGS (4)
  1. LUNESTA [Suspect]
     Indication: INSOMNIA
     Dosage: 2 MG;1X;ORAL
     Route: 048
     Dates: start: 20070308, end: 20070308
  2. WELLBUTRIN [Concomitant]
  3. LEXAPRO [Concomitant]
  4. PERCOCET [Concomitant]

REACTIONS (2)
  - DYSGEUSIA [None]
  - PARAESTHESIA ORAL [None]
